FAERS Safety Report 22639272 (Version 2)
Quarter: 2024Q2

REPORT INFORMATION
  Report Type: Report from Study
  Country: US (occurrence: US)
  Receive Date: 20230626
  Receipt Date: 20240605
  Transmission Date: 20240716
  Serious: Yes (Other)
  Sender: FDA-Public Use
  Company Number: US-THEA-2023001028

PATIENT
  Age: 75 Year
  Sex: Female

DRUGS (1)
  1. AZASITE [Suspect]
     Active Substance: AZITHROMYCIN MONOHYDRATE
     Indication: Blepharitis
     Dosage: BOTH EYES
     Route: 047
     Dates: start: 20230609, end: 20230611

REACTIONS (4)
  - Blindness [Not Recovered/Not Resolved]
  - Eye irritation [Unknown]
  - Rash [Unknown]
  - Off label use [Unknown]

NARRATIVE: CASE EVENT DATE: 20230609
